FAERS Safety Report 4523688-3 (Version None)
Quarter: 2004Q4

REPORT INFORMATION
  Report Type: 
  Country: None (occurrence: None)
  Receive Date: 20041210
  Receipt Date: 20041006
  Transmission Date: 20050328
  Serious: Yes (Death, Life-Threatening)
  Sender: FDA-Public Use
  Company Number: JP-GLAXOSMITHKLINE-B0347548A

PATIENT
  Age: 52 Year
  Sex: Male
  Weight: 65 kg

DRUGS (6)
  1. ZEFIX [Suspect]
     Indication: HEPATITIS B
     Dosage: 100MG PER DAY
     Route: 048
     Dates: start: 20040918, end: 20041110
  2. NEO-MINOPHAGEN C [Concomitant]
     Dosage: 80ML PER DAY
     Route: 042
     Dates: start: 20040915
  3. PHYSIO 35 [Concomitant]
     Dosage: 500ML PER DAY
     Route: 042
     Dates: start: 20040915
  4. HUMULIN R [Concomitant]
     Dosage: 10IU PER DAY
     Route: 042
     Dates: start: 20040915
  5. GLUCAGON [Concomitant]
     Route: 042
     Dates: start: 20040915
  6. FRESH FROZEN PLASMA [Concomitant]
     Route: 065
     Dates: start: 20040914

REACTIONS (7)
  - DEPRESSED LEVEL OF CONSCIOUSNESS [None]
  - DISSEMINATED INTRAVASCULAR COAGULATION [None]
  - HAEMODIALYSIS [None]
  - HEPATIC FAILURE [None]
  - JAUNDICE [None]
  - PORTAL VEIN THROMBOSIS [None]
  - PUTAMEN HAEMORRHAGE [None]
